FAERS Safety Report 10210542 (Version 1)
Quarter: 2014Q2

REPORT INFORMATION
  Report Type: Spontaneous
  Country: US (occurrence: None)
  Receive Date: 20140529
  Receipt Date: 20140529
  Transmission Date: 20141212
  Serious: Yes (Hospitalization)
  Sender: FDA-Public Use
  Company Number: None

PATIENT
  Age: 61 Year
  Sex: Male
  Weight: 88.6 kg

DRUGS (3)
  1. VANCOMYCIN [Suspect]
     Indication: DIABETIC FOOT INFECTION
     Route: 042
     Dates: start: 20140511, end: 20140515
  2. VANCOMYCIN [Suspect]
     Route: 042
     Dates: start: 20140511, end: 20140515
  3. LISINOPRIL [Suspect]
     Indication: HYPERTENSION
     Route: 048
     Dates: start: 20140512, end: 20140515

REACTIONS (1)
  - Renal tubular necrosis [None]
